FAERS Safety Report 15937621 (Version 1)
Quarter: 2019Q1

REPORT INFORMATION
  Report Type: Spontaneous
  Country: US (occurrence: US)
  Receive Date: 20190208
  Receipt Date: 20190208
  Transmission Date: 20190417
  Serious: No
  Sender: FDA-Public Use
  Company Number: US-ICU MEDICAL, INC.-ICU2018US00014

PATIENT

DRUGS (2)
  1. ENTYVIO [Suspect]
     Active Substance: VEDOLIZUMAB
     Indication: COLITIS ULCERATIVE
     Dosage: UNK
     Route: 042
     Dates: start: 20180607, end: 20180607
  2. 0.9% SODIUM CHLORIDE INJECTION USP (250 ML) [Suspect]
     Active Substance: SODIUM CHLORIDE
     Indication: MEDICATION DILUTION
     Dosage: 250 MILLILITER
     Route: 042
     Dates: start: 20180607, end: 20180607

REACTIONS (4)
  - Product contamination physical [Unknown]
  - No adverse event [Unknown]
  - Poor quality product administered [None]
  - Product quality issue [None]

NARRATIVE: CASE EVENT DATE: 201806
